FAERS Safety Report 6687835-X (Version None)
Quarter: 2010Q2

REPORT INFORMATION
  Report Type: 
  Country: None (occurrence: None)
  Receive Date: 20100420
  Receipt Date: 20100414
  Transmission Date: 20101027
  Serious: Yes (Hospitalization)
  Sender: FDA-Public Use
  Company Number: FR-B.I. PHARMACEUTICALS,INC./RIDGEFIELD-2010-DE-00549GL

PATIENT
  Sex: Female

DRUGS (4)
  1. TELMISARTAN [Suspect]
     Route: 048
     Dates: start: 20090815, end: 20091028
  2. METHOTREXATE [Suspect]
     Indication: ACUTE LYMPHOCYTIC LEUKAEMIA
     Route: 065
     Dates: end: 20091028
  3. MERCAPTOPURINE [Suspect]
     Indication: ACUTE LYMPHOCYTIC LEUKAEMIA
     Dosage: 100 MG
     Route: 048
     Dates: start: 20090512, end: 20091028
  4. AZITHROMYCIN [Concomitant]
     Dosage: 250 MG
     Dates: start: 20090907, end: 20091028

REACTIONS (5)
  - ASTHENIA [None]
  - DIARRHOEA [None]
  - HYPERBILIRUBINAEMIA [None]
  - JAUNDICE [None]
  - WEIGHT DECREASED [None]
